FAERS Safety Report 24089696 (Version 1)
Quarter: 2024Q3

REPORT INFORMATION
  Report Type: Spontaneous
  Country: US (occurrence: US)
  Receive Date: 20240715
  Receipt Date: 20240715
  Transmission Date: 20241017
  Serious: No
  Sender: ROCHE
  Company Number: US-ROCHE-10000025123

PATIENT
  Age: 76 Year
  Sex: Female
  Weight: 110.67 kg

DRUGS (14)
  1. AVASTIN [Suspect]
     Active Substance: BEVACIZUMAB
     Indication: Retinal vein occlusion
     Dosage: SUBSEQUENT DOSES GIVEN ON AN UNKNON DATE AT FREQUENCY OF ONCE IN 5 WEEKS, ONCE IN 6 WEEKS, ONCE IN 7
     Route: 050
     Dates: start: 202307
  2. AVASTIN [Suspect]
     Active Substance: BEVACIZUMAB
     Route: 050
  3. AVASTIN [Suspect]
     Active Substance: BEVACIZUMAB
     Route: 050
  4. AVASTIN [Suspect]
     Active Substance: BEVACIZUMAB
     Route: 050
  5. AVASTIN [Suspect]
     Active Substance: BEVACIZUMAB
     Route: 050
  6. DILTIAZEM [Concomitant]
     Active Substance: DILTIAZEM
     Indication: Blood pressure measurement
  7. MONTELUKAST SODIUM [Concomitant]
     Active Substance: MONTELUKAST SODIUM
     Indication: Hypersensitivity
  8. IPRATROPIUM BROMIDE [Concomitant]
     Active Substance: IPRATROPIUM BROMIDE\IPRATROPIUM BROMIDE ANHYDROUS
     Indication: Hypersensitivity
     Route: 045
  9. POTASSIUM [Concomitant]
     Active Substance: POTASSIUM
  10. FUROSEMIDE [Concomitant]
     Active Substance: FUROSEMIDE
  11. ELIQUIS [Concomitant]
     Active Substance: APIXABAN
  12. CLARITIN [Concomitant]
     Active Substance: LORATADINE
     Indication: Hypersensitivity
  13. ASPIRIN [Concomitant]
     Active Substance: ASPIRIN
     Dosage: TAKES ON MONDAY, WEDNESDAY, AND FRIDAY
  14. PATADAY [Concomitant]
     Active Substance: OLOPATADINE HYDROCHLORIDE

REACTIONS (2)
  - Off label use [Unknown]
  - Eczema [Not Recovered/Not Resolved]

NARRATIVE: CASE EVENT DATE: 20230701
